FAERS Safety Report 19501326 (Version 1)
Quarter: 2021Q3

REPORT INFORMATION
  Report Type: Spontaneous
  Country: US (occurrence: US)
  Receive Date: 20210707
  Receipt Date: 20210707
  Transmission Date: 20211014
  Serious: Yes (Other)
  Sender: FDA-Public Use
  Company Number: None

PATIENT
  Sex: Male

DRUGS (2)
  1. CRESTOR [Suspect]
     Active Substance: ROSUVASTATIN CALCIUM
  2. ADVICOR [Suspect]
     Active Substance: LOVASTATIN\NIACIN

REACTIONS (3)
  - Hepatic function abnormal [None]
  - Muscle disorder [None]
  - Blood cholesterol increased [None]
